FAERS Safety Report 18572295 (Version 1)
Quarter: 2020Q4

REPORT INFORMATION
  Report Type: Spontaneous
  Country: US (occurrence: US)
  Receive Date: 20201202
  Receipt Date: 20201202
  Transmission Date: 20210114
  Serious: No
  Sender: FDA-Public Use
  Company Number: US-009507513-2012USA000245

PATIENT
  Sex: Female
  Weight: 53.97 kg

DRUGS (18)
  1. CYANOCOBALAMIN. [Concomitant]
     Active Substance: CYANOCOBALAMIN
  2. PRINIVIL [Suspect]
     Active Substance: LISINOPRIL
     Route: 048
  3. CALTRATE [Concomitant]
     Active Substance: CALCIUM CARBONATE
  4. TAMSULOSIN HYDROCHLORIDE. [Concomitant]
     Active Substance: TAMSULOSIN HYDROCHLORIDE
  5. DOXYCYCLINE. [Concomitant]
     Active Substance: DOXYCYCLINE
  6. METOPROLOL TARTRATE. [Concomitant]
     Active Substance: METOPROLOL TARTRATE
  7. OXYBUTYNIN. [Concomitant]
     Active Substance: OXYBUTYNIN CHLORIDE
  8. GENTAMICIN. [Concomitant]
     Active Substance: GENTAMICIN
  9. CENTRUM SILVER [Concomitant]
     Active Substance: MINERALS\VITAMINS
  10. ACETAMINOPHEN (+) HYDROCODONE BITARTRATE [Concomitant]
     Active Substance: ACETAMINOPHEN\HYDROCODONE BITARTRATE
  11. FASLODEX [Concomitant]
     Active Substance: FULVESTRANT
  12. ELIQUIS [Concomitant]
     Active Substance: APIXABAN
  13. AMLODIPINE [Concomitant]
     Active Substance: AMLODIPINE BESYLATE
  14. IRON (UNSPECIFIED) [Concomitant]
     Active Substance: IRON
  15. ASCORBIC ACID. [Concomitant]
     Active Substance: ASCORBIC ACID
  16. XGEVA [Concomitant]
     Active Substance: DENOSUMAB
  17. CILOSTAZOL. [Concomitant]
     Active Substance: CILOSTAZOL
  18. PROCRIT [Concomitant]
     Active Substance: ERYTHROPOIETIN

REACTIONS (1)
  - Drug hypersensitivity [Unknown]
